FAERS Safety Report 9063120 (Version 1)
Quarter: 2013Q1

REPORT INFORMATION
  Report Type: Report from Study
  Country: US (occurrence: US)
  Receive Date: 20130213
  Receipt Date: 20130213
  Transmission Date: 20140127
  Serious: Yes (Hospitalization, Other)
  Sender: FDA-Public Use
  Company Number: US-JNJFOC-20130201019

PATIENT
  Sex: Male
  Weight: 80.74 kg

DRUGS (6)
  1. REMICADE [Suspect]
     Indication: CROHN^S DISEASE
     Route: 042
  2. HUMIRA [Suspect]
     Indication: CROHN^S DISEASE
     Route: 058
  3. PREDNISONE [Concomitant]
     Indication: CROHN^S DISEASE
     Route: 048
  4. ASPIRIN [Concomitant]
     Indication: CROHN^S DISEASE
     Route: 048
  5. PENTASA [Concomitant]
     Indication: CROHN^S DISEASE
     Route: 048
  6. CIMZIA [Concomitant]
     Indication: CROHN^S DISEASE
     Route: 058

REACTIONS (2)
  - Crohn^s disease [Recovered/Resolved]
  - Hospitalisation [Recovered/Resolved]
